APPROVED DRUG PRODUCT: DRICORT
Active Ingredient: HYDROCORTISONE ACETATE
Strength: 0.5%
Dosage Form/Route: LOTION;TOPICAL
Application: A086207 | Product #001
Applicant: INGRAM PHARMACEUTICAL CO
Approved: Approved Prior to Jan 1, 1982 | RLD: No | RS: No | Type: DISCN